FAERS Safety Report 15993576 (Version 1)
Quarter: 2019Q1

REPORT INFORMATION
  Report Type: Report from Study
  Country: US (occurrence: US)
  Receive Date: 20190222
  Receipt Date: 20190222
  Transmission Date: 20190418
  Serious: Yes (Other)
  Sender: FDA-Public Use
  Company Number: US-ROCHE-1827376

PATIENT
  Age: 69 Year
  Sex: Male

DRUGS (18)
  1. HYDRODIURIL [Concomitant]
     Active Substance: HYDROCHLOROTHIAZIDE
  2. ATARAX [Concomitant]
     Active Substance: HYDROXYZINE HYDROCHLORIDE
  3. FISH OIL [Concomitant]
     Active Substance: FISH OIL
  4. SIMVASTATIN. [Concomitant]
     Active Substance: SIMVASTATIN
  5. VEMURAFENIB. [Suspect]
     Active Substance: VEMURAFENIB
     Dosage: (720.0 MG *2)*45DAYS
     Route: 048
     Dates: start: 20160323, end: 20160506
  6. NORCO [Concomitant]
     Active Substance: ACETAMINOPHEN\HYDROCODONE BITARTRATE
     Dosage: 7.5 - 325 MG
     Route: 065
  7. VEMURAFENIB. [Suspect]
     Active Substance: VEMURAFENIB
     Indication: PAPILLARY THYROID CANCER
     Dosage: (960.0 MG X 2) 7DAYS
     Route: 048
     Dates: start: 20160306, end: 20160312
  8. SYNTHROID [Concomitant]
     Active Substance: LEVOTHYROXINE SODIUM
  9. IBUPROFEN. [Concomitant]
     Active Substance: IBUPROFEN
  10. ALLOPURINOL. [Concomitant]
     Active Substance: ALLOPURINOL
  11. CARVEDILOL. [Concomitant]
     Active Substance: CARVEDILOL
  12. DILAUDID [Concomitant]
     Active Substance: HYDROMORPHONE HYDROCHLORIDE
  13. SILVADENE [Concomitant]
     Active Substance: SILVER SULFADIAZINE
  14. METFORMIN HYDROCHLORIDE. [Concomitant]
     Active Substance: METFORMIN HYDROCHLORIDE
     Route: 065
  15. VEMURAFENIB. [Suspect]
     Active Substance: VEMURAFENIB
     Route: 048
     Dates: start: 20160306, end: 20160506
  16. ASPIRIN. [Concomitant]
     Active Substance: ASPIRIN
  17. AVAPRO [Concomitant]
     Active Substance: IRBESARTAN
  18. UBIQUINOL CO Q10 [Concomitant]
     Route: 048

REACTIONS (4)
  - Squamous cell carcinoma [Recovered/Resolved]
  - Rash maculo-papular [Recovered/Resolved]
  - Prostate cancer [Not Recovered/Not Resolved]
  - Adenocarcinoma [Unknown]

NARRATIVE: CASE EVENT DATE: 20160311
